FAERS Safety Report 21915993 (Version 1)
Quarter: 2023Q1

REPORT INFORMATION
  Report Type: Spontaneous
  Country: US (occurrence: None)
  Receive Date: 20230125
  Receipt Date: 20230125
  Transmission Date: 20230418
  Serious: Yes (Other)
  Sender: FDA-Public Use
  Company Number: None

PATIENT
  Age: 34 Year
  Sex: Female
  Weight: 85.5 kg

DRUGS (1)
  1. MONTELUKAST SODIUM [Suspect]
     Active Substance: MONTELUKAST SODIUM
     Indication: Sinusitis
     Dosage: OTHER QUANTITY : 90 TABLET(S);?FREQUENCY : AT BEDTIME;?
     Route: 048
     Dates: start: 20230106, end: 20230125

REACTIONS (5)
  - Depression [None]
  - Anxiety [None]
  - Agitation [None]
  - Mood swings [None]
  - Condition aggravated [None]

NARRATIVE: CASE EVENT DATE: 20230125
